FAERS Safety Report 18848709 (Version 1)
Quarter: 2021Q1

REPORT INFORMATION
  Report Type: Report from Study
  Country: None (occurrence: US)
  Receive Date: 20210205
  Receipt Date: 20210205
  Transmission Date: 20210419
  Serious: Yes (Hospitalization, Other)
  Sender: FDA-Public Use
  Company Number: US-ABBVIE-21K-163-3756196-00

PATIENT
  Sex: Female

DRUGS (1)
  1. IMBRUVICA [Suspect]
     Active Substance: IBRUTINIB
     Indication: CHRONIC LYMPHOCYTIC LEUKAEMIA
     Route: 048
     Dates: start: 20200213

REACTIONS (6)
  - Chest pain [Unknown]
  - Aggression [Unknown]
  - Pulmonary oedema [Unknown]
  - Renal impairment [Unknown]
  - Nasopharyngitis [Unknown]
  - Cardiac disorder [Unknown]
